FAERS Safety Report 9677474 (Version 1)
Quarter: 2013Q4

REPORT INFORMATION
  Report Type: Report from Study
  Country: CL (occurrence: CL)
  Receive Date: 20131108
  Receipt Date: 20131108
  Transmission Date: 20140711
  Serious: Yes (Other)
  Sender: FDA-Public Use
  Company Number: PHHY2013CL126788

PATIENT
  Age: 88 Year
  Sex: Male

DRUGS (1)
  1. TAREG [Suspect]
     Dosage: 160 MG, UNK
     Route: 048

REACTIONS (1)
  - Deafness [Not Recovered/Not Resolved]
